FAERS Safety Report 9933909 (Version 1)
Quarter: 2014Q1

REPORT INFORMATION
  Report Type: Spontaneous
  Country: IT (occurrence: IT)
  Receive Date: 20140228
  Receipt Date: 20140228
  Transmission Date: 20141002
  Serious: Yes (Hospitalization)
  Sender: FDA-Public Use
  Company Number: PHHY2014IT021231

PATIENT
  Age: 38 Year
  Sex: Female

DRUGS (13)
  1. NEORAL [Suspect]
     Indication: IMMUNOSUPPRESSION
  2. EVEROLIMUS [Suspect]
     Indication: IMMUNOSUPPRESSION
     Dosage: 0.25 MG, UNK
  3. METHYLPREDNISOLONE [Suspect]
     Indication: IMMUNOSUPPRESSION
     Dosage: 1.5 MG/KG, PER DAY
  4. METHYLPREDNISOLONE [Suspect]
     Dosage: 1 G, UNK
  5. AZATHIOPRINE [Suspect]
     Indication: IMMUNOSUPPRESSION
  6. MYCOPHENOLATE [Suspect]
  7. PREDNISONE [Suspect]
     Indication: IMMUNOSUPPRESSION
  8. DIURETICS [Concomitant]
  9. ACE INHIBITORS [Concomitant]
  10. BETA BLOCKING AGENTS [Concomitant]
  11. ANTIBIOTICS [Concomitant]
  12. DOBUTAMINE [Concomitant]
  13. DOPAMINE [Concomitant]

REACTIONS (7)
  - Myocarditis [Recovered/Resolved]
  - Oedema [Recovered/Resolved]
  - Troponin I increased [Recovered/Resolved]
  - Ventricular extrasystoles [Recovered/Resolved]
  - Cardiac ventricular thrombosis [Recovered/Resolved]
  - Disease progression [Unknown]
  - Drug ineffective [Unknown]
